FAERS Safety Report 6061588-0 (Version None)
Quarter: 2009Q1

REPORT INFORMATION
  Report Type: 
  Country: None (occurrence: None)
  Receive Date: 20090202
  Receipt Date: 20090130
  Transmission Date: 20090719
  Serious: Yes (Other)
  Sender: FDA-Public Use
  Company Number: A0761167A

PATIENT
  Age: 55 Year
  Sex: Male

DRUGS (3)
  1. NICORETTE [Suspect]
     Indication: SMOKING CESSATION THERAPY
     Route: 002
     Dates: end: 20081211
  2. NICORETTE [Suspect]
     Route: 002
     Dates: start: 20070101, end: 20070101
  3. NONE [Concomitant]

REACTIONS (6)
  - DRUG ADMINISTRATION ERROR [None]
  - FACIAL PALSY [None]
  - INTENTIONAL DRUG MISUSE [None]
  - OEDEMA MOUTH [None]
  - ORAL PAIN [None]
  - SWOLLEN TONGUE [None]
